FAERS Safety Report 8370103-8 (Version None)
Quarter: 2012Q2

REPORT INFORMATION
  Report Type: 
  Country: None (occurrence: None)
  Receive Date: 20120518
  Receipt Date: 20120508
  Transmission Date: 20120825
  Serious: Yes (Hospitalization, Other)
  Sender: FDA-Public Use
  Company Number: DE-MEDIMMUNE-MEDI-0014723

PATIENT
  Sex: Male

DRUGS (1)
  1. SYNAGIS [Suspect]
     Indication: ANTIVIRAL PROPHYLAXIS
     Dosage: 15 MG/KG BODY WEIGHT ONCE 7 DAYS BEFORE PNEUMONIA, TWO INJECTIONS
     Route: 030

REACTIONS (3)
  - OXYGEN SUPPLEMENTATION [None]
  - RESPIRATORY DISORDER [None]
  - PNEUMONIA RESPIRATORY SYNCYTIAL VIRAL [None]
